FAERS Safety Report 16287191 (Version 1)
Quarter: 2019Q2

REPORT INFORMATION
  Report Type: Spontaneous
  Country: CN (occurrence: CN)
  Receive Date: 20190508
  Receipt Date: 20190508
  Transmission Date: 20190711
  Serious: Yes (Hospitalization)
  Sender: FDA-Public Use
  Company Number: CN-BAXTER-2019BAX008955

PATIENT
  Age: 54 Year
  Sex: Male
  Weight: 70 kg

DRUGS (12)
  1. STERILE WATER FOR INJECTION [Suspect]
     Active Substance: WATER
     Dosage: DOSE RE-INTRODUCED, EPIRUBICIN + WATER FOR INJECTION
     Route: 042
  2. ENDOXAN [Suspect]
     Active Substance: CYCLOPHOSPHAMIDE
     Indication: LYMPHOMA
     Dosage: DOSAGE FORM: INJECTION, CYCLOPHOSPHAMIDE + 0.9% NS
     Route: 042
     Dates: start: 20180716, end: 20180716
  3. 0.9% SODIUM CHLORIDE INJECTION [Suspect]
     Active Substance: SODIUM CHLORIDE
     Dosage: DOSE RE-INTRODUCED, CYCLOPHOSPHAMIDE + 0.9% NS,
     Route: 042
  4. 0.9% SODIUM CHLORIDE INJECTION [Suspect]
     Active Substance: SODIUM CHLORIDE
     Dosage: VINDESINE +0.9 % NS ON DAY 1
     Route: 042
     Dates: start: 20180716, end: 20180716
  5. EPIRUBICIN HYDROCHLORIDE. [Suspect]
     Active Substance: EPIRUBICIN HYDROCHLORIDE
     Dosage: DOSE RE-INTRODUCED, EPIRUBICIN + WATER FOR INJECTION,
     Route: 042
  6. ENDOXAN [Suspect]
     Active Substance: CYCLOPHOSPHAMIDE
     Dosage: DOSAGE FORM: INJECTION, CYCLOPHOSPHAMIDE + 0.9% NS, DOSE RE-INTRODUCED
     Route: 042
  7. 0.9% SODIUM CHLORIDE INJECTION [Suspect]
     Active Substance: SODIUM CHLORIDE
     Dosage: DOSE RE-INTRODUCED, VINDESINE + 0.9 % NS
     Route: 042
  8. EPIRUBICIN HYDROCHLORIDE. [Suspect]
     Active Substance: EPIRUBICIN HYDROCHLORIDE
     Indication: LYMPHOMA
     Dosage: EPIRUBICIN + WATER FOR INJECTION
     Route: 042
     Dates: start: 20180716, end: 20180716
  9. VINDESINE SULFATE [Suspect]
     Active Substance: VINDESINE SULFATE
     Indication: LYMPHOMA
     Dosage: VINDESINE + 0.9% NS ON DAY 1
     Route: 042
     Dates: start: 20180716, end: 20180716
  10. VINDESINE SULFATE [Suspect]
     Active Substance: VINDESINE SULFATE
     Dosage: DOSE RE-INTRODUCED, VINDESINE + 0.9 % NS
     Route: 042
  11. STERILE WATER FOR INJECTION [Suspect]
     Active Substance: WATER
     Indication: MEDICATION DILUTION
     Dosage: EPIRUBICIN + WATER FOR INJECTION
     Route: 042
     Dates: start: 20180716, end: 20180716
  12. 0.9% SODIUM CHLORIDE INJECTION [Suspect]
     Active Substance: SODIUM CHLORIDE
     Indication: MEDICATION DILUTION
     Dosage: CYCLOPHOSPHAMIDE + 0.9% NS
     Route: 042
     Dates: start: 20180716, end: 20180716

REACTIONS (1)
  - Bone marrow failure [Recovering/Resolving]

NARRATIVE: CASE EVENT DATE: 20180725
